FAERS Safety Report 7003593-3 (Version None)
Quarter: 2010Q3

REPORT INFORMATION
  Report Type: 
  Country: None (occurrence: None)
  Receive Date: 20100920
  Receipt Date: 20100913
  Transmission Date: 20110219
  Serious: Yes (Other)
  Sender: FDA-Public Use
  Company Number: US-AMGEN-KDL437739

PATIENT
  Age: 43 Year
  Sex: Male

DRUGS (3)
  1. SENSIPAR [Suspect]
     Indication: HYPERPARATHYROIDISM SECONDARY
     Route: 048
  2. WARFARIN SODIUM [Concomitant]
  3. THYMOGLOBULIN [Concomitant]

REACTIONS (4)
  - CALCIPHYLAXIS [None]
  - DRUG RESISTANCE [None]
  - INFECTION [None]
  - SKIN ULCER [None]
